FAERS Safety Report 9158034 (Version 1)
Quarter: 2013Q1

REPORT INFORMATION
  Report Type: Spontaneous
  Country: US (occurrence: US)
  Receive Date: 20130312
  Receipt Date: 20130312
  Transmission Date: 20140127
  Serious: Yes (Other)
  Sender: FDA-Public Use
  Company Number: US-BAYER-2013-028302

PATIENT
  Age: 80 Year
  Sex: Male
  Weight: 86.17 kg

DRUGS (2)
  1. ALKA-SELTZER ORIGINAL [Suspect]
     Dosage: 2 DF, QD
     Route: 048
     Dates: end: 20130129
  2. PRILOSEC [Concomitant]

REACTIONS (4)
  - Oesophagitis [Not Recovered/Not Resolved]
  - Gastritis [Not Recovered/Not Resolved]
  - Withdrawal syndrome [Recovered/Resolved]
  - Incorrect drug administration duration [None]
